FAERS Safety Report 19913064 (Version 1)
Quarter: 2021Q4

REPORT INFORMATION
  Report Type: Spontaneous
  Country: GB (occurrence: GB)
  Receive Date: 20211004
  Receipt Date: 20211004
  Transmission Date: 20220303
  Serious: Yes (Other)
  Sender: FDA-Public Use
  Company Number: None

PATIENT
  Age: 27 Year
  Sex: Female
  Weight: 57 kg

DRUGS (3)
  1. PREDNISOLONE [Suspect]
     Active Substance: PREDNISOLONE
     Indication: Ill-defined disorder
     Dosage: 60MG FIRST WEEK, 55MG WEEK 2 AND 3, 40MG FOR THE REST OF THE TIME
     Route: 048
     Dates: start: 20210601, end: 20210831
  2. PREDNISOLONE [Suspect]
     Active Substance: PREDNISOLONE
     Indication: Central nervous system lesion
  3. AMITRIPTYLINE [Concomitant]
     Active Substance: AMITRIPTYLINE
     Indication: Ill-defined disorder

REACTIONS (12)
  - Weight increased [Recovering/Resolving]
  - Panic attack [Recovered/Resolved]
  - Hypomenorrhoea [Recovered/Resolved with Sequelae]
  - Anxiety [Recovering/Resolving]
  - Mood swings [Recovering/Resolving]
  - Cushingoid [Not Recovered/Not Resolved]
  - Euphoric mood [Recovered/Resolved]
  - Menstruation irregular [Not Recovered/Not Resolved]
  - Constipation [Recovering/Resolving]
  - Diarrhoea [Recovered/Resolved]
  - Disturbance in attention [Recovered/Resolved]
  - Medication error [Unknown]

NARRATIVE: CASE EVENT DATE: 20210601
